FAERS Safety Report 12366912 (Version 1)
Quarter: 2016Q2

REPORT INFORMATION
  Report Type: Spontaneous
  Country: PL (occurrence: PL)
  Receive Date: 20160513
  Receipt Date: 20160513
  Transmission Date: 20160815
  Serious: Yes (Other)
  Sender: FDA-Public Use
  Company Number: PL-ROCHE-1754830

PATIENT

DRUGS (3)
  1. TOCILIZUMAB [Suspect]
     Active Substance: TOCILIZUMAB
     Indication: PRODUCT USED FOR UNKNOWN INDICATION
     Route: 065
  2. SULFASALAZINE. [Concomitant]
     Active Substance: SULFASALAZINE
     Route: 065
  3. METHOTREXATE [Concomitant]
     Active Substance: METHOTREXATE
     Dosage: 10-30 MG
     Route: 065

REACTIONS (17)
  - Colorectal adenocarcinoma [Unknown]
  - Leukopenia [Unknown]
  - Hyperlipidaemia [Unknown]
  - Urinary tract infection [Unknown]
  - Granulocytopenia [Unknown]
  - Pneumonia [Unknown]
  - Herpes zoster [Unknown]
  - Upper respiratory tract infection [Unknown]
  - Thrombocytopenia [Unknown]
  - Hypercholesterolaemia [Unknown]
  - Weight increased [Unknown]
  - Gangrene [Unknown]
  - Disease recurrence [Unknown]
  - Respiratory tract infection [Unknown]
  - Neutropenia [Unknown]
  - Herpes simplex [Unknown]
  - Skin infection [Unknown]
